FAERS Safety Report 10472916 (Version 2)
Quarter: 2014Q4

REPORT INFORMATION
  Report Type: Spontaneous
  Country: CH (occurrence: None)
  Receive Date: 20140922
  Receipt Date: 20141110
  Transmission Date: 20150528
  Serious: Yes (Other)
  Sender: FDA-Public Use
  Company Number: 20140607

PATIENT
  Sex: Female
  Weight: 63 kg

DRUGS (1)
  1. FERINJECT [Suspect]
     Active Substance: FERRIC CARBOXYMALTOSE
     Indication: IRON DEFICIENCY ANAEMIA
     Dosage: 500MG, 1 IN 1 TOTAL) INTRAVENOPS DRIP
     Route: 041

REACTIONS (3)
  - Rash [None]
  - Ear swelling [None]
  - Dyspnoea [None]
